FAERS Safety Report 9472804 (Version 1)
Quarter: 2013Q3

REPORT INFORMATION
  Report Type: Spontaneous
  Country: DK (occurrence: DK)
  Receive Date: 20130823
  Receipt Date: 20130823
  Transmission Date: 20140515
  Serious: Yes (Other)
  Sender: FDA-Public Use
  Company Number: DK-UCBSA-095755

PATIENT
  Sex: Female

DRUGS (1)
  1. CIMZIA [Suspect]
     Indication: PSORIATIC ARTHROPATHY
     Dosage: STRENGTH: 200 MG
     Route: 065

REACTIONS (2)
  - Foetal death [Not Recovered/Not Resolved]
  - Exposure via body fluid [Recovered/Resolved]
